FAERS Safety Report 8174207-4 (Version None)
Quarter: 2012Q1

REPORT INFORMATION
  Report Type: 
  Country: None (occurrence: None)
  Receive Date: 20120227
  Receipt Date: 20120209
  Transmission Date: 20120608
  Serious: Yes (Hospitalization)
  Sender: FDA-Public Use
  Company Number: 2012NUEUSA00069

PATIENT
  Age: 46 Year
  Sex: Male
  Weight: 113.4 kg

DRUGS (11)
  1. LORAZEPAM [Suspect]
     Indication: ANXIETY
     Dosage: 1 MG, PRN
  2. IBUPROFEN [Concomitant]
  3. NICOTINE [Concomitant]
  4. ULTRAM [Concomitant]
  5. NUEDEXTA [Suspect]
     Indication: AMYOTROPHIC LATERAL SCLEROSIS
     Dosage: 1 CAP, BID
     Dates: start: 20110221, end: 20111001
  6. FLEXERIL [Concomitant]
  7. OMEPRAZOLE [Concomitant]
  8. BUPROPION HCL [Concomitant]
  9. FENTANYL [Suspect]
     Indication: PAIN
     Dosage: 12 MCG
     Dates: start: 20111129
  10. PRILOSEC [Concomitant]
  11. ASTELIN /00085801/ (DIPROPHYLLINE) [Concomitant]

REACTIONS (15)
  - VIRAL INFECTION [None]
  - AMYOTROPHIC LATERAL SCLEROSIS [None]
  - PAIN [None]
  - ANXIETY [None]
  - TREATMENT NONCOMPLIANCE [None]
  - UNEVALUABLE EVENT [None]
  - CHOKING SENSATION [None]
  - MUSCULAR WEAKNESS [None]
  - DYSPHAGIA [None]
  - DISEASE PROGRESSION [None]
  - CHRONIC OBSTRUCTIVE PULMONARY DISEASE [None]
  - NASOPHARYNGITIS [None]
  - RESPIRATORY DISTRESS [None]
  - PNEUMONIA [None]
  - DEPRESSION [None]
